FAERS Safety Report 9452057 (Version 2)
Quarter: 2013Q3

REPORT INFORMATION
  Report Type: Spontaneous
  Country: US (occurrence: US)
  Receive Date: 20130812
  Receipt Date: 20130926
  Transmission Date: 20140515
  Serious: No
  Sender: FDA-Public Use
  Company Number: US-BIOGENIDEC-2013BI073334

PATIENT
  Sex: Female

DRUGS (1)
  1. TYSABRI [Suspect]
     Indication: MULTIPLE SCLEROSIS
     Route: 042
     Dates: start: 20120507, end: 20130701

REACTIONS (7)
  - Influenza like illness [Unknown]
  - Fall [Recovered/Resolved]
  - Balance disorder [Unknown]
  - Feeling hot [Unknown]
  - Feeling cold [Unknown]
  - Multiple sclerosis relapse [Unknown]
  - Dizziness [Unknown]
